FAERS Safety Report 17611268 (Version 1)
Quarter: 2020Q1

REPORT INFORMATION
  Report Type: Spontaneous
  Country: US (occurrence: US)
  Receive Date: 20200330
  Receipt Date: 20200330
  Transmission Date: 20200409
  Serious: Yes (Hospitalization)
  Sender: FDA-Public Use
  Company Number: None

PATIENT
  Age: 87 Year
  Sex: Male
  Weight: 83 kg

DRUGS (1)
  1. ZOLEDRONIC (ZOLEDRONIC ACID 5MG/BAG INJ, 100ML) [Suspect]
     Active Substance: ZOLEDRONIC ACID
     Indication: OSTEOPOROSIS
     Dosage: ?          OTHER ROUTE:IV?
     Dates: start: 20181206, end: 20181206

REACTIONS (5)
  - Blood urea increased [None]
  - Chest pain [None]
  - Acute kidney injury [None]
  - Blood creatinine increased [None]
  - Renal impairment [None]

NARRATIVE: CASE EVENT DATE: 20181206
